FAERS Safety Report 24320209 (Version 1)
Quarter: 2024Q3

REPORT INFORMATION
  Report Type: Report from Study
  Country: US (occurrence: US)
  Receive Date: 20240914
  Receipt Date: 20240914
  Transmission Date: 20241016
  Serious: Yes (Hospitalization)
  Sender: ABBVIE
  Company Number: US-ABBVIE-5922590

PATIENT
  Sex: Male

DRUGS (1)
  1. RINVOQ [Suspect]
     Active Substance: UPADACITINIB
     Indication: Crohn^s disease
     Dosage: EXTENDED RELEASE
     Route: 048

REACTIONS (3)
  - Renal failure [Unknown]
  - Herpes zoster [Not Recovered/Not Resolved]
  - Pain of skin [Not Recovered/Not Resolved]
